FAERS Safety Report 8375958-9 (Version None)
Quarter: 2012Q2

REPORT INFORMATION
  Report Type: 
  Country: None (occurrence: None)
  Receive Date: 20120522
  Receipt Date: 20120509
  Transmission Date: 20120825
  Serious: Yes (Death, Other)
  Sender: FDA-Public Use
  Company Number: JP-ASTELLAS-2012US004839

PATIENT
  Age: 77 Year
  Sex: Male

DRUGS (2)
  1. ERLOTINIB HYDROCHLORIDE [Suspect]
     Indication: LUNG ADENOCARCINOMA
     Dosage: UNK
     Route: 048
     Dates: start: 20120216, end: 20120223
  2. DOCETAXEL [Suspect]
     Indication: LUNG ADENOCARCINOMA
     Dosage: UNK
     Route: 041
     Dates: start: 20120215

REACTIONS (16)
  - ANAEMIA [None]
  - INFLAMMATORY MARKER INCREASED [None]
  - ASTHENIA [None]
  - MALNUTRITION [None]
  - FAECES DISCOLOURED [None]
  - PNEUMONIA ASPIRATION [None]
  - PLEURAL INFECTION [None]
  - DIARRHOEA [None]
  - NEUTROPHIL COUNT DECREASED [None]
  - BRONCHIAL FISTULA [None]
  - WHITE BLOOD CELL COUNT DECREASED [None]
  - DEVICE RELATED INFECTION [None]
  - ASPHYXIA [None]
  - GASTRIC ULCER HAEMORRHAGE [None]
  - HEPATIC FUNCTION ABNORMAL [None]
  - MUSCULAR WEAKNESS [None]
